FAERS Safety Report 4802724-0 (Version None)
Quarter: 2005Q4

REPORT INFORMATION
  Report Type: 
  Country: None (occurrence: None)
  Receive Date: 20051014
  Receipt Date: 20041018
  Transmission Date: 20060501
  Serious: Yes (Other)
  Sender: FDA-Public Use
  Company Number: 2004059018

PATIENT
  Age: 68 Year
  Sex: Male

DRUGS (10)
  1. NEURONTIN [Suspect]
     Indication: NEUROPATHY
     Dosage: 300 MG (300 MG, 1 IN 1 D), ORAL
     Route: 048
     Dates: end: 20040701
  2. ANTINEOPLASTIC AGENTS (ANTINEOPLASTIC AGENTS) [Concomitant]
  3. VICODIN [Concomitant]
  4. LISINOPRIL [Concomitant]
  5. ATORVASTATIN CALCIUM [Concomitant]
  6. METOPROLOL SUCCINATE [Concomitant]
  7. ZOLPIDEM TARTRATE [Concomitant]
  8. ACYCLOVIR [Concomitant]
  9. FOLIC ACID [Concomitant]
  10. RANITIDINE HYDROCHLORIDE [Concomitant]

REACTIONS (1)
  - VISUAL FIELD DEFECT [None]
